FAERS Safety Report 6302246-4 (Version None)
Quarter: 2009Q3

REPORT INFORMATION
  Report Type: 
  Country: None (occurrence: None)
  Receive Date: 20090810
  Receipt Date: 20090729
  Transmission Date: 20100115
  Serious: Yes (Hospitalization)
  Sender: FDA-Public Use
  Company Number: US-RANBAXY-2009RR-26002

PATIENT
  Age: 79 Year
  Sex: Female

DRUGS (9)
  1. CIPROFLOXACIN [Suspect]
     Dosage: 500 MG, BID
     Route: 048
  2. AMINOPHYLLINE [Suspect]
     Dosage: 400 MG, QID
  3. TERBUTALINE SULFATE [Concomitant]
     Dosage: 2.5 MG, TID
  4. PREDNISONE [Concomitant]
     Dosage: 5 MG, BID
  5. ISOSORBIDE DINITRATE [Concomitant]
     Dosage: 20 MG, TID
  6. MEPROBAMATE [Concomitant]
     Dosage: 200 MG, QID
  7. FUROSEMIDE [Concomitant]
     Dosage: 40 MG, BID
  8. HYDROXYZINE [Concomitant]
     Indication: ANXIETY
     Dosage: 10 MG, TID
  9. DYPHENHYDRAMINE [Concomitant]
     Dosage: 50 MG, QD

REACTIONS (2)
  - DRUG INTERACTION [None]
  - DRUG TOXICITY [None]
